FAERS Safety Report 5158267-0 (Version None)
Quarter: 2006Q4

REPORT INFORMATION
  Report Type: 
  Country: None (occurrence: None)
  Receive Date: 20061117
  Receipt Date: 20061106
  Transmission Date: 20070319
  Serious: Yes (Hospitalization)
  Sender: FDA-Public Use
  Company Number: GBWYE778224AUG06

PATIENT
  Age: 20 Year
  Sex: Female

DRUGS (9)
  1. RAPAMUNE [Suspect]
     Indication: IMMUNOSUPPRESSION
     Dosage: SEE IMAGE
     Dates: start: 20060101, end: 20060101
  2. RAPAMUNE [Suspect]
     Indication: IMMUNOSUPPRESSION
     Dosage: SEE IMAGE
     Dates: start: 20051206, end: 20060501
  3. RAPAMUNE [Suspect]
     Indication: IMMUNOSUPPRESSION
     Dosage: SEE IMAGE
     Dates: start: 20060501
  4. IMPLANON (ETONOGESTREL, , 0) [Suspect]
     Indication: CONTRACEPTION
  5. MYFORTIC [Suspect]
     Indication: IMMUNOSUPPRESSION
  6. PREDNISOLONE [Concomitant]
  7. RANITIDINE [Concomitant]
  8. AMLODIPINE [Concomitant]
  9. PEN-V (PHENOXYMETHYLPENICILLIN POTASSIUM) [Concomitant]

REACTIONS (3)
  - DRUG INTERACTION [None]
  - RENAL IMPAIRMENT [None]
  - TRANSPLANT REJECTION [None]
